FAERS Safety Report 4302950-3 (Version None)
Quarter: 2004Q1

REPORT INFORMATION
  Report Type: 
  Country: None (occurrence: None)
  Receive Date: 20040223
  Receipt Date: 20040223
  Transmission Date: 20041129
  Serious: Yes (Other)
  Sender: FDA-Public Use
  Company Number: None

PATIENT
  Sex: Female
  Weight: 61.2356 kg

DRUGS (2)
  1. PAXIL [Suspect]
     Indication: ANXIETY
     Dosage: 30 MG ONCE A DAY ORAL
     Route: 048
     Dates: start: 20030101, end: 20040221
  2. PAXIL [Suspect]
     Indication: MAJOR DEPRESSION
     Dosage: 30 MG ONCE A DAY ORAL
     Route: 048
     Dates: start: 20030101, end: 20040221

REACTIONS (2)
  - ASTHENIA [None]
  - DRUG WITHDRAWAL SYNDROME [None]
